FAERS Safety Report 5130839-9 (Version None)
Quarter: 2006Q4

REPORT INFORMATION
  Report Type: 
  Country: None (occurrence: None)
  Receive Date: 20061017
  Receipt Date: 20061017
  Transmission Date: 20070319
  Serious: Yes (Hospitalization)
  Sender: FDA-Public Use
  Company Number: None

PATIENT
  Age: 50 Year
  Sex: Male
  Weight: 99.8 kg

DRUGS (2)
  1. LISINOPRIL [Suspect]
     Indication: DIABETES MELLITUS
     Dosage: 40MG QD PO  SEVERAL YEARS
     Route: 048
  2. LISINOPRIL [Suspect]
     Indication: HYPERTENSION
     Dosage: 40MG QD PO  SEVERAL YEARS
     Route: 048

REACTIONS (4)
  - BACK PAIN [None]
  - ELECTROCARDIOGRAM T WAVE PEAKED [None]
  - HYPERKALAEMIA [None]
  - RENAL FAILURE CHRONIC [None]
